FAERS Safety Report 24438170 (Version 1)
Quarter: 2024Q4

REPORT INFORMATION
  Report Type: Spontaneous
  Country: FR (occurrence: FR)
  Receive Date: 20241015
  Receipt Date: 20241015
  Transmission Date: 20250115
  Serious: Yes (Hospitalization)
  Sender: ASTELLAS
  Company Number: None

PATIENT
  Age: 65 Year
  Sex: Male
  Weight: 72.7 kg

DRUGS (10)
  1. PROGRAF [Interacting]
     Active Substance: TACROLIMUS
     Indication: Prophylaxis against transplant rejection
     Route: 048
     Dates: start: 20240826, end: 20240910
  2. PROGRAF [Interacting]
     Active Substance: TACROLIMUS
     Route: 048
     Dates: start: 20240918
  3. PROGRAF [Interacting]
     Active Substance: TACROLIMUS
     Route: 042
     Dates: start: 20240910, end: 20240912
  4. PROGRAF [Interacting]
     Active Substance: TACROLIMUS
     Route: 042
     Dates: start: 20240914, end: 20240918
  5. PREVYMIS [Interacting]
     Active Substance: LETERMOVIR
     Indication: Antiviral prophylaxis
     Route: 048
     Dates: start: 20240822, end: 20240910
  6. PREVYMIS [Interacting]
     Active Substance: LETERMOVIR
     Route: 048
     Dates: start: 20240918
  7. PREVYMIS [Interacting]
     Active Substance: LETERMOVIR
     Route: 042
     Dates: start: 20240910, end: 20240918
  8. FLUCONAZOLE [Interacting]
     Active Substance: FLUCONAZOLE
     Indication: Antifungal prophylaxis
     Route: 048
     Dates: start: 20240918
  9. FLUCONAZOLE [Interacting]
     Active Substance: FLUCONAZOLE
     Route: 048
     Dates: start: 20240823, end: 20240910
  10. FLUCONAZOLE [Interacting]
     Active Substance: FLUCONAZOLE
     Route: 042
     Dates: start: 20240910, end: 20240918

REACTIONS (4)
  - Accidental overdose [Recovered/Resolved]
  - Drug interaction [Recovered/Resolved]
  - Immunosuppressant drug level increased [Recovered/Resolved]
  - Off label use [Unknown]

NARRATIVE: CASE EVENT DATE: 20240826
